FAERS Safety Report 5912382-X (Version None)
Quarter: 2008Q4

REPORT INFORMATION
  Report Type: 
  Country: None (occurrence: None)
  Receive Date: 20081007
  Receipt Date: 20081007
  Transmission Date: 20090506
  Serious: Yes (Other)
  Sender: FDA-Public Use
  Company Number: None

PATIENT
  Sex: Female
  Weight: 80.7 kg

DRUGS (5)
  1. TEMOZOLOMIDE [Suspect]
     Indication: ACUTE MYELOID LEUKAEMIA
  2. MULTI-VITAMINS [Concomitant]
  3. CALCIUM [Concomitant]
  4. MAGNESIUM SULFATE [Concomitant]
  5. LEXAPRO [Concomitant]

REACTIONS (2)
  - FUNGAL INFECTION [None]
  - PNEUMONIA [None]
